FAERS Safety Report 4932806-4 (Version None)
Quarter: 2006Q1

REPORT INFORMATION
  Report Type: 
  Country: None (occurrence: None)
  Receive Date: 20060306
  Receipt Date: 20060224
  Transmission Date: 20060701
  Serious: Yes (Other)
  Sender: FDA-Public Use
  Company Number: 2006UW03237

PATIENT
  Sex: Female

DRUGS (3)
  1. SEROQUEL [Suspect]
     Indication: SLEEP DISORDER
     Route: 048
  2. SEROQUEL [Suspect]
     Indication: BIPOLAR I DISORDER
     Route: 048
  3. CLONIDINE [Concomitant]

REACTIONS (5)
  - BLINDNESS [None]
  - FEELING ABNORMAL [None]
  - ILL-DEFINED DISORDER [None]
  - INSOMNIA [None]
  - TREMOR [None]
